FAERS Safety Report 13031347 (Version 1)
Quarter: 2016Q4

REPORT INFORMATION
  Report Type: Spontaneous
  Country: US (occurrence: US)
  Receive Date: 20161215
  Receipt Date: 20161215
  Transmission Date: 20170207
  Serious: No
  Sender: FDA-Public Use
  Company Number: US-SA-2016SA023117

PATIENT
  Sex: Female

DRUGS (1)
  1. FERRLECIT [Suspect]
     Active Substance: SODIUM FERRIC GLUCONATE COMPLEX
     Indication: IRON DEFICIENCY ANAEMIA
     Route: 065

REACTIONS (5)
  - Swelling [Unknown]
  - Malaise [Unknown]
  - Vomiting [Unknown]
  - Urticaria [Recovered/Resolved]
  - Musculoskeletal stiffness [Recovering/Resolving]
